FAERS Safety Report 23187477 (Version 2)
Quarter: 2023Q4

REPORT INFORMATION
  Report Type: Spontaneous
  Country: JP (occurrence: JP)
  Receive Date: 20231115
  Receipt Date: 20231221
  Transmission Date: 20240110
  Serious: Yes (Death, Other)
  Sender: FDA-Public Use
  Company Number: JP-Merck Healthcare KGaA-2023486390

PATIENT
  Age: 67 Year
  Sex: Male

DRUGS (5)
  1. ERBITUX [Suspect]
     Active Substance: CETUXIMAB
     Indication: Squamous cell carcinoma of the tongue
     Dosage: 400 MG/M2, AT FIRST
     Route: 041
     Dates: start: 202105, end: 202105
  2. ERBITUX [Suspect]
     Active Substance: CETUXIMAB
     Dosage: 250 MG/M2, AFTER THE SECOND AND SUBSEQUENT DOSES
     Route: 041
     Dates: start: 2021
  3. PACLITAXEL [Suspect]
     Active Substance: PACLITAXEL
     Indication: Squamous cell carcinoma of the tongue
     Dosage: 80 MG/M2, UNKNOWN
     Dates: start: 202105
  4. DEXAMETHASONE SODIUM PHOSPHATE [Concomitant]
     Active Substance: DEXAMETHASONE PHOSPHATE\DEXAMETHASONE SODIUM PHOSPHATE
     Indication: Oedema
     Dosage: 1.65 MG, DAILY
     Route: 065
  5. DEXAMETHASONE SODIUM PHOSPHATE [Concomitant]
     Active Substance: DEXAMETHASONE PHOSPHATE\DEXAMETHASONE SODIUM PHOSPHATE
     Dosage: 3.3 MG, DAILY
     Route: 065

REACTIONS (4)
  - Respiratory failure [Fatal]
  - Malignant neoplasm progression [Fatal]
  - Malignant pleural effusion [Unknown]
  - Malaise [Unknown]

NARRATIVE: CASE EVENT DATE: 20210901
